FAERS Safety Report 19654282 (Version 2)
Quarter: 2021Q3

REPORT INFORMATION
  Report Type: Spontaneous
  Country: US (occurrence: US)
  Receive Date: 20210804
  Receipt Date: 20210816
  Transmission Date: 20211014
  Serious: Yes (Death, Life-Threatening, Hospitalization, Other)
  Sender: FDA-Public Use
  Company Number: US-ADVANZ PHARMA-202107005400

PATIENT

DRUGS (5)
  1. PREDNISONE. [Suspect]
     Active Substance: PREDNISONE
     Dosage: 60 MG, QD
     Route: 065
  2. HYDROXYCHLOROQUINE [Suspect]
     Active Substance: HYDROXYCHLOROQUINE
     Indication: IMMUNOSUPPRESSANT DRUG THERAPY
     Dosage: UNKNOWN
     Route: 065
  3. MYCOPHENOLIC ACID. [Suspect]
     Active Substance: MYCOPHENOLIC ACID
     Indication: IMMUNOSUPPRESSANT DRUG THERAPY
     Dosage: UNK
     Route: 065
  4. PREDNISONE. [Suspect]
     Active Substance: PREDNISONE
     Indication: IMMUNOSUPPRESSANT DRUG THERAPY
     Dosage: 20 MG, QD
     Route: 065
  5. PREDNISONE. [Suspect]
     Active Substance: PREDNISONE
     Dosage: 40 MG, QD
     Route: 065

REACTIONS (21)
  - Histoplasmosis disseminated [Fatal]
  - Epistaxis [Fatal]
  - Renal injury [Fatal]
  - Dyspnoea [Fatal]
  - Skin mass [Fatal]
  - Haemophagocytic lymphohistiocytosis [Fatal]
  - Ecchymosis [Fatal]
  - Pulmonary mass [Fatal]
  - Abdominal pain lower [Fatal]
  - Pyrexia [Fatal]
  - Induration [Fatal]
  - Fatigue [Fatal]
  - Cerebral infarction [Fatal]
  - Pancytopenia [Fatal]
  - Cushingoid [Fatal]
  - Erythema [Fatal]
  - Skin striae [Fatal]
  - Oedema [Fatal]
  - Cellulitis [Fatal]
  - Multiple organ dysfunction syndrome [Fatal]
  - Abdominal tenderness [Fatal]
